FAERS Safety Report 4441081-9 (Version None)
Quarter: 2004Q3

REPORT INFORMATION
  Report Type: 
  Country: None (occurrence: None)
  Receive Date: 20040902
  Receipt Date: 20040902
  Transmission Date: 20050211
  Serious: Yes (Hospitalization)
  Sender: FDA-Public Use
  Company Number: None

PATIENT
  Sex: Male

DRUGS (3)
  1. OXALIPLATIN [Suspect]
  2. AVASTIN [Suspect]
  3. XELODA [Suspect]

REACTIONS (3)
  - ABDOMINAL PAIN [None]
  - NAUSEA [None]
  - RETCHING [None]
